FAERS Safety Report 12929558 (Version 1)
Quarter: 2016Q4

REPORT INFORMATION
  Report Type: Report from Study
  Country: None (occurrence: CA)
  Receive Date: 20161110
  Receipt Date: 20161110
  Transmission Date: 20170207
  Serious: Yes (Other)
  Sender: FDA-Public Use
  Company Number: CA-ABBVIE-16K-028-1773953-00

PATIENT
  Sex: Male

DRUGS (1)
  1. HUMIRA [Suspect]
     Active Substance: ADALIMUMAB
     Indication: RHEUMATOID ARTHRITIS
     Route: 058
     Dates: start: 20150712

REACTIONS (4)
  - Heart rate irregular [Unknown]
  - Injection site pain [Not Recovered/Not Resolved]
  - Structural valve deterioration [Not Recovered/Not Resolved]
  - Coronary artery occlusion [Unknown]
